FAERS Safety Report 20670448 (Version 2)
Quarter: 2022Q2

REPORT INFORMATION
  Report Type: Spontaneous
  Country: JP (occurrence: JP)
  Receive Date: 20220404
  Receipt Date: 20220411
  Transmission Date: 20220720
  Serious: Yes (Hospitalization)
  Sender: FDA-Public Use
  Company Number: JP-BAYER-2022A045522

PATIENT
  Age: 75 Year
  Sex: Female
  Weight: 41.8 kg

DRUGS (8)
  1. XARELTO [Suspect]
     Active Substance: RIVAROXABAN
     Indication: Atrial fibrillation
     Dosage: 1 DF, QD
     Route: 048
     Dates: start: 20191211, end: 20220104
  2. AMLODIPINE [Concomitant]
     Active Substance: AMLODIPINE BESYLATE
     Dosage: 5 MG, QD
  3. CARVEDILOL [Concomitant]
     Active Substance: CARVEDILOL
     Dosage: 5 MG, QD
  4. PRAVASTATIN [Concomitant]
     Active Substance: PRAVASTATIN
     Dosage: 10 MG, QD
  5. PILSICAINIDE [Concomitant]
     Active Substance: PILSICAINIDE
     Dosage: 50 MG, BID
  6. PANTETHINE [Concomitant]
     Active Substance: PANTETHINE
     Dosage: 100 MG, BID
  7. MAGNESIUM OXIDE [Concomitant]
     Active Substance: MAGNESIUM OXIDE
     Dosage: 330 MG, BID
  8. FLUTICASONE PROPIONATE [Concomitant]
     Active Substance: FLUTICASONE PROPIONATE
     Dosage: 100 UG, BID
     Route: 055

REACTIONS (8)
  - Gastrointestinal mucosal disorder [Recovering/Resolving]
  - Diverticulum intestinal haemorrhagic [Recovering/Resolving]
  - Haematochezia [Recovering/Resolving]
  - Malaise [Recovering/Resolving]
  - Melaena [Recovering/Resolving]
  - Large intestine erosion [Recovering/Resolving]
  - Gastrointestinal mucosa hyperaemia [Recovering/Resolving]
  - Cryptitis [Recovering/Resolving]

NARRATIVE: CASE EVENT DATE: 20220102
